FAERS Safety Report 10204989 (Version 2)
Quarter: 2014Q2

REPORT INFORMATION
  Report Type: Spontaneous
  Country: US (occurrence: US)
  Receive Date: 20140529
  Receipt Date: 20140625
  Transmission Date: 20141212
  Serious: Yes (Other)
  Sender: FDA-Public Use
  Company Number: CHPA2014US006919

PATIENT
  Age: 36 Year
  Sex: Female

DRUGS (3)
  1. TRANSDERM SCOP [Suspect]
     Indication: NAUSEA
     Dosage: 1 DF, QD
     Route: 062
     Dates: start: 20140519, end: 20140519
  2. TRANSDERM SCOP [Suspect]
     Indication: OFF LABEL USE
     Dosage: 1 DF, UNK
     Route: 062
     Dates: end: 20140525
  3. ORTHO EVRA [Concomitant]
     Route: 062

REACTIONS (4)
  - Blindness transient [Recovered/Resolved]
  - Application site pruritus [Recovered/Resolved]
  - Vision blurred [Recovered/Resolved]
  - Therapeutic response changed [Unknown]
